FAERS Safety Report 6677634-7 (Version None)
Quarter: 2010Q2

REPORT INFORMATION
  Report Type: 
  Country: None (occurrence: None)
  Receive Date: 20100412
  Receipt Date: 20100224
  Transmission Date: 20101027
  Serious: No
  Sender: FDA-Public Use
  Company Number: CA-ALEXION-A201000222

PATIENT
  Sex: Male

DRUGS (7)
  1. SOLIRIS [Suspect]
     Indication: PAROXYSMAL NOCTURNAL HAEMOGLOBINURIA
     Dosage: 600 MG, QWKX4
     Route: 042
     Dates: start: 20090724
  2. SOLIRIS [Suspect]
     Dosage: 900 MG, Q2WK
     Route: 042
     Dates: start: 20090821
  3. PREDNISOLONE [Concomitant]
     Dosage: 5 MG, QD
     Dates: end: 20100101
  4. WARFARIN [Concomitant]
     Dosage: UNK
     Dates: end: 20100101
  5. FOLIC ACID [Concomitant]
     Dosage: 5 MG, QD
     Dates: end: 20100101
  6. FOLIC ACID [Concomitant]
     Dosage: 1 MG, QD
     Dates: start: 20100101
  7. ACCUTANE [Concomitant]
     Dosage: 10 MG, 3XWK

REACTIONS (2)
  - HAEMOGLOBIN DECREASED [None]
  - NASOPHARYNGITIS [None]
